FAERS Safety Report 10551774 (Version 1)
Quarter: 2014Q4

REPORT INFORMATION
  Report Type: Spontaneous
  Country: US (occurrence: None)
  Receive Date: 20141027
  Receipt Date: 20141027
  Transmission Date: 20150529
  Serious: Yes (Hospitalization, Other)
  Sender: FDA-Public Use
  Company Number: ADR-2014-01965

PATIENT
  Age: 20 Year
  Sex: Male

DRUGS (2)
  1. ORAL BACLOFEN [Suspect]
     Active Substance: BACLOFEN
  2. BACLOFEN INTRATHECAL (2000 MCG/ML) [Suspect]
     Active Substance: BACLOFEN
     Indication: MUSCLE SPASTICITY

REACTIONS (11)
  - Logorrhoea [None]
  - Tongue disorder [None]
  - General physical health deterioration [None]
  - Overdose [None]
  - Hypertonia [None]
  - Device breakage [None]
  - Vomiting [None]
  - Respiratory rate decreased [None]
  - Lethargy [None]
  - Feeling abnormal [None]
  - Tremor [None]

NARRATIVE: CASE EVENT DATE: 20140909
